FAERS Safety Report 6060144-8 (Version None)
Quarter: 2009Q1

REPORT INFORMATION
  Report Type: 
  Country: None (occurrence: None)
  Receive Date: 20090128
  Receipt Date: 20090116
  Transmission Date: 20090719
  Serious: Yes (Hospitalization)
  Sender: FDA-Public Use
  Company Number: LTI2009A00015

PATIENT
  Sex: Female

DRUGS (1)
  1. COMPETACT (PIOGLITAZONE HYDROCHLORIDE,METFORMIN  HYDROCHLORIDE) [Suspect]
     Indication: TYPE 2 DIABETES MELLITUS
     Dosage: 2 DF (1 DF,2 IN 1 D) ORAL
     Route: 048
     Dates: start: 20071101, end: 20081201

REACTIONS (1)
  - PULMONARY ARTERIAL HYPERTENSION [None]
